FAERS Safety Report 12626880 (Version 5)
Quarter: 2016Q4

REPORT INFORMATION
  Report Type: Spontaneous
  Country: DE (occurrence: DE)
  Receive Date: 20160805
  Receipt Date: 20161027
  Transmission Date: 20170207
  Serious: Yes (Death, Other)
  Sender: FDA-Public Use
  Company Number: DE-TAKEDA-2016TUS013561

PATIENT
  Age: 67 Year
  Sex: Female
  Weight: 71 kg

DRUGS (2)
  1. ENTYVIO [Suspect]
     Active Substance: VEDOLIZUMAB
     Indication: COLITIS ULCERATIVE
     Dosage: 300 MG, UNK
     Route: 042
     Dates: start: 20160607, end: 20160620
  2. PREDNISONE. [Concomitant]
     Active Substance: PREDNISONE
     Indication: COLITIS ULCERATIVE
     Dosage: 20 MG, UNK

REACTIONS (6)
  - Enteritis [Fatal]
  - Sepsis [Fatal]
  - Vasculitis [Fatal]
  - Gastrointestinal necrosis [Fatal]
  - Liver disorder [Fatal]
  - Ileus paralytic [Fatal]

NARRATIVE: CASE EVENT DATE: 20160629
